FAERS Safety Report 4833161-0 (Version None)
Quarter: 2005Q4

REPORT INFORMATION
  Report Type: 
  Country: None (occurrence: None)
  Receive Date: 20051117
  Receipt Date: 20051103
  Transmission Date: 20060501
  Serious: Yes (Hospitalization, Other)
  Sender: FDA-Public Use
  Company Number: DE_051117402

PATIENT
  Age: 53 Year
  Sex: Female

DRUGS (4)
  1. GEMZAR [Suspect]
     Indication: BILE DUCT CANCER
     Dosage: 250 MG/M2
  2. CHEMO EMBOLIZATION [Concomitant]
  3. PIPERACILLIN [Concomitant]
  4. .. [Concomitant]

REACTIONS (7)
  - BILE DUCT CANCER [None]
  - BLOOD CHOLINESTERASE INCREASED [None]
  - CHOLANGITIS [None]
  - CLOSTRIDIUM COLITIS [None]
  - MALIGNANT NEOPLASM PROGRESSION [None]
  - PROTHROMBIN TIME PROLONGED [None]
  - PYREXIA [None]
